FAERS Safety Report 4967911-X (Version None)
Quarter: 2006Q2

REPORT INFORMATION
  Report Type: 
  Country: None (occurrence: None)
  Receive Date: 20060410
  Receipt Date: 20051006
  Transmission Date: 20061013
  Serious: Yes (Other)
  Sender: FDA-Public Use
  Company Number: US-MERCK-0510USA05852

PATIENT
  Age: 62 Year
  Sex: Male
  Weight: 100 kg

DRUGS (23)
  1. VIOXX [Suspect]
     Indication: ARTHRITIS
     Route: 048
     Dates: start: 20000101, end: 20040901
  2. VICODIN [Concomitant]
     Route: 065
     Dates: start: 20000624
  3. ANAVAR [Concomitant]
     Route: 065
  4. DIOVAN [Concomitant]
     Route: 065
     Dates: start: 20010125
  5. PRAVACHOL [Concomitant]
     Route: 065
     Dates: start: 20020125
  6. ASPIRIN [Concomitant]
     Route: 065
  7. CLARITIN [Concomitant]
     Route: 065
     Dates: start: 20030114
  8. RHINOCORT [Concomitant]
     Route: 065
     Dates: start: 20020222
  9. PROVENTIL [Concomitant]
     Route: 065
     Dates: start: 20030114
  10. NASACORT [Concomitant]
     Route: 065
     Dates: start: 20030114
  11. NASONEX [Concomitant]
     Route: 055
     Dates: start: 20030115
  12. ADVAIR DISKUS 100/50 [Concomitant]
     Route: 065
     Dates: start: 20020222
  13. AMOXICILLIN [Concomitant]
     Route: 065
     Dates: start: 20020222
  14. MECLIZINE HYDROCHLORIDE [Concomitant]
     Route: 065
     Dates: start: 20031001
  15. PREDNISONE [Concomitant]
     Route: 065
     Dates: start: 20030628
  16. PREDNISONE [Concomitant]
     Route: 065
     Dates: start: 20020101
  17. LAMISIL [Concomitant]
     Route: 065
     Dates: start: 20020710
  18. AMBIEN [Concomitant]
     Route: 065
     Dates: start: 20020711
  19. AMBIEN [Concomitant]
     Route: 065
     Dates: start: 20021001
  20. BIAXIN [Concomitant]
     Route: 065
     Dates: start: 20021001
  21. DEXAMETHASONE [Concomitant]
     Route: 065
     Dates: start: 20021018
  22. COUGH, COLD, AND FLU THERAPIES (UNSPECIFIED) [Concomitant]
     Route: 065
     Dates: start: 20030404
  23. COUGH, COLD, AND FLU THERAPIES (UNSPECIFIED) [Concomitant]
     Route: 065
     Dates: start: 20030404

REACTIONS (23)
  - ANXIETY [None]
  - ARTHROPATHY [None]
  - ASTHENIA [None]
  - BRONCHITIS [None]
  - CARDIAC FAILURE [None]
  - CHEST PAIN [None]
  - COORDINATION ABNORMAL [None]
  - DEAFNESS NEUROSENSORY [None]
  - DIZZINESS [None]
  - EAR PAIN [None]
  - FALL [None]
  - GASTROOESOPHAGEAL REFLUX DISEASE [None]
  - MYALGIA [None]
  - MYOCARDIAL INFARCTION [None]
  - OSTEOARTHRITIS [None]
  - PAIN [None]
  - PATELLOFEMORAL PAIN SYNDROME [None]
  - ROTATOR CUFF SYNDROME [None]
  - SYNCOPE [None]
  - TENDON RUPTURE [None]
  - TINNITUS [None]
  - TREMOR [None]
  - VERTIGO [None]
